FAERS Safety Report 20027179 (Version 2)
Quarter: 2021Q4

REPORT INFORMATION
  Report Type: Spontaneous
  Country: CN (occurrence: CN)
  Receive Date: 20211103
  Receipt Date: 20211121
  Transmission Date: 20220303
  Serious: Yes (Other)
  Sender: FDA-Public Use
  Company Number: CN-009507513-2110CHN009037

PATIENT
  Age: 68 Year
  Sex: Male

DRUGS (2)
  1. CILASTATIN SODIUM\IMIPENEM [Suspect]
     Active Substance: CILASTATIN SODIUM\IMIPENEM
     Indication: Sepsis
     Dosage: 1000 MG, Q12H
     Route: 041
     Dates: start: 20210926, end: 20210927
  2. SODIUM CHLORIDE [Concomitant]
     Active Substance: SODIUM CHLORIDE
     Indication: Medication dilution
     Dosage: 100 ML, Q12H
     Route: 041
     Dates: start: 20210926, end: 20210927

REACTIONS (5)
  - Seizure [Unknown]
  - Ureteric cancer [Unknown]
  - Tremor [Unknown]
  - Nervous system disorder [Unknown]
  - Product use issue [Unknown]

NARRATIVE: CASE EVENT DATE: 20210101
